FAERS Safety Report 10179147 (Version 2)
Quarter: 2014Q2

REPORT INFORMATION
  Report Type: Spontaneous
  Country: ES (occurrence: ES)
  Receive Date: 20140519
  Receipt Date: 20140523
  Transmission Date: 20141212
  Serious: Yes (Other)
  Sender: FDA-Public Use
  Company Number: PHHY2014ES056581

PATIENT
  Age: 87 Year
  Sex: 0

DRUGS (3)
  1. SINTROM [Suspect]
     Dosage: UNK UKN, UNK
     Route: 048
  2. LEVOFLOXACIN [Interacting]
     Dosage: 1500 MG, Q8H
     Route: 048
     Dates: start: 20140411, end: 20140415
  3. PARACETAMOL [Concomitant]
     Dosage: 1 G, Q8H

REACTIONS (4)
  - Depressed level of consciousness [Unknown]
  - Coagulopathy [Unknown]
  - Incorrect dose administered [Recovered/Resolved]
  - Drug interaction [Unknown]
